FAERS Safety Report 12951221 (Version 1)
Quarter: 2016Q4

REPORT INFORMATION
  Report Type: Spontaneous
  Country: US (occurrence: US)
  Receive Date: 20161117
  Receipt Date: 20161117
  Transmission Date: 20170207
  Serious: No
  Sender: FDA-Public Use
  Company Number: US-MYLANLABS-2015M1035474

PATIENT
  Age: 70 Year
  Sex: Female

DRUGS (1)
  1. HYDROCHLOROTHIAZIDE/VALSARTAN [Suspect]
     Active Substance: HYDROCHLOROTHIAZIDE\VALSARTAN
     Indication: HYPERTENSION
     Dosage: UNK
     Dates: start: 201510, end: 201510

REACTIONS (6)
  - Abdominal pain upper [Recovered/Resolved]
  - Haemorrhage [None]
  - Product substitution issue [None]
  - Pruritus [Recovered/Resolved]
  - Scratch [None]
  - Adverse event [Recovered/Resolved]

NARRATIVE: CASE EVENT DATE: 201510
